FAERS Safety Report 6969878-1 (Version None)
Quarter: 2010Q3

REPORT INFORMATION
  Report Type: 
  Country: None (occurrence: None)
  Receive Date: 20100908
  Receipt Date: 20100825
  Transmission Date: 20110219
  Serious: Yes (Hospitalization, Other)
  Sender: FDA-Public Use
  Company Number: NO-RANBAXY-2010RR-37858

PATIENT
  Age: 42 Year
  Sex: Female

DRUGS (4)
  1. FLUOXETINE [Suspect]
     Indication: SUICIDE ATTEMPT
     Dosage: 800 MG, UNK
     Route: 048
  2. ZOPICLONE [Suspect]
     Indication: SUICIDE ATTEMPT
     Route: 048
  3. SERTINDOLE [Suspect]
     Indication: SUICIDE ATTEMPT
     Dosage: 1792 MG, UNK
     Route: 048
  4. LITHIUM [Concomitant]

REACTIONS (4)
  - ELECTROCARDIOGRAM QT INTERVAL [None]
  - INTENTIONAL OVERDOSE [None]
  - LEUKOCYTOSIS [None]
  - SUICIDE ATTEMPT [None]
